FAERS Safety Report 18221164 (Version 1)
Quarter: 2020Q3

REPORT INFORMATION
  Report Type: Spontaneous
  Country: US (occurrence: US)
  Receive Date: 20200901
  Receipt Date: 20200901
  Transmission Date: 20201103
  Serious: Yes (Hospitalization)
  Sender: FDA-Public Use
  Company Number: None

PATIENT
  Age: 66 Year
  Sex: Female
  Weight: 56.25 kg

DRUGS (22)
  1. SEROQUEL [Concomitant]
     Active Substance: QUETIAPINE FUMARATE
  2. LACTULOSE. [Concomitant]
     Active Substance: LACTULOSE
  3. ONDANSETRON [Concomitant]
     Active Substance: ONDANSETRON
  4. ALLOPURINOL. [Concomitant]
     Active Substance: ALLOPURINOL
  5. AUGMENTIN [Concomitant]
     Active Substance: AMOXICILLIN\CLAVULANATE POTASSIUM
  6. ASPIRIN. [Concomitant]
     Active Substance: ASPIRIN
  7. NORCO [Concomitant]
     Active Substance: ACETAMINOPHEN\HYDROCODONE BITARTRATE
  8. ALBUTEROL. [Concomitant]
     Active Substance: ALBUTEROL
  9. AMLODIPINE [Concomitant]
     Active Substance: AMLODIPINE BESYLATE
  10. FOLIC ACID. [Concomitant]
     Active Substance: FOLIC ACID
  11. HUMALOG KWIKPEN [Concomitant]
     Active Substance: INSULIN LISPRO
  12. LANTUS [Concomitant]
     Active Substance: INSULIN GLARGINE
  13. AMITRIPTYLINE [Concomitant]
     Active Substance: AMITRIPTYLINE
  14. GABAPENTIN. [Concomitant]
     Active Substance: GABAPENTIN
  15. HYOSCAMINE [Concomitant]
  16. BUSPIRONE [Concomitant]
     Active Substance: BUSPIRONE HYDROCHLORIDE
  17. CARVEDILOL. [Concomitant]
     Active Substance: CARVEDILOL
  18. ESOMEPRAZOLE. [Concomitant]
     Active Substance: ESOMEPRAZOLE MAGNESIUM
  19. TASIGNA [Suspect]
     Active Substance: NILOTINIB
     Indication: ACUTE LYMPHOCYTIC LEUKAEMIA
     Route: 048
     Dates: start: 20200812
  20. LISINOPRIL. [Concomitant]
     Active Substance: LISINOPRIL
  21. PREDNISONE. [Concomitant]
     Active Substance: PREDNISONE
  22. PROPRANOLOL [Concomitant]
     Active Substance: PROPRANOLOL HYDROCHLORIDE

REACTIONS (3)
  - Herpes zoster [None]
  - Therapy interrupted [None]
  - Blood glucose decreased [None]

NARRATIVE: CASE EVENT DATE: 20200901
